FAERS Safety Report 9270828 (Version 1)
Quarter: 2013Q2

REPORT INFORMATION
  Report Type: Spontaneous
  Country: US (occurrence: US)
  Receive Date: 20130506
  Receipt Date: 20130506
  Transmission Date: 20140414
  Serious: Yes (Death, Hospitalization)
  Sender: FDA-Public Use
  Company Number: US-AMGEN-USASP2013018842

PATIENT
  Age: 84 Year
  Sex: Male
  Weight: 76.64 kg

DRUGS (8)
  1. PROCRIT [Suspect]
     Indication: NEPHROGENIC ANAEMIA
     Dosage: 40000 UNIT, Q3WK
     Route: 030
     Dates: start: 20110524, end: 20130306
  2. SYNTHROID [Concomitant]
     Indication: HYPOTHYROIDISM
     Dosage: 50 MUG, QD
  3. LIPITOR [Concomitant]
     Dosage: UNK
  4. NORVASC [Concomitant]
     Indication: HYPERTENSION
     Dosage: 10 MG, QD
  5. ALLOPURINOL [Concomitant]
     Indication: GOUT
     Dosage: 100 MG, QD
  6. CARVEDILOL [Concomitant]
     Dosage: UNK
  7. ASPIRIN [Concomitant]
     Indication: CORONARY ARTERY DISEASE
     Dosage: 81 MG, QD
  8. VITAMINS                           /00067501/ [Concomitant]
     Dosage: UNK

REACTIONS (3)
  - Thrombosis [Fatal]
  - Subarachnoid haemorrhage [Fatal]
  - Subdural haemorrhage [Fatal]
